FAERS Safety Report 10765755 (Version 1)
Quarter: 2015Q1

REPORT INFORMATION
  Report Type: Spontaneous
  Country: CH (occurrence: CH)
  Receive Date: 20150205
  Receipt Date: 20150205
  Transmission Date: 20150721
  Serious: Yes (Life-Threatening, Hospitalization)
  Sender: FDA-Public Use
  Company Number: CH-009507513-1501CHE011529

PATIENT
  Age: 71 Year
  Sex: Female

DRUGS (11)
  1. TIENAM [Suspect]
     Active Substance: CILASTATIN SODIUM\IMIPENEM
     Dosage: 500 MG, QID
     Route: 041
     Dates: start: 20141003
  2. ZYLORIC [Suspect]
     Active Substance: ALLOPURINOL
     Dosage: 300 MG, QD
     Route: 048
     Dates: start: 20140930, end: 20141007
  3. VALTREX [Suspect]
     Active Substance: VALACYCLOVIR HYDROCHLORIDE
     Dosage: 500 MG, BID
     Route: 048
     Dates: start: 20140924
  4. DAUNORUBICIN [Concomitant]
     Active Substance: DAUNORUBICIN
     Indication: ACUTE MYELOID LEUKAEMIA
     Dosage: 77 MG, QD
     Route: 041
     Dates: start: 20140930, end: 20141002
  5. AMBISOME [Suspect]
     Active Substance: AMPHOTERICIN B
     Dosage: 375 MG, QD
     Route: 041
     Dates: start: 20141003
  6. CYTARABINE. [Suspect]
     Active Substance: CYTARABINE
     Indication: ACUTE MYELOID LEUKAEMIA
     Dosage: 342 MG, QD (PER 1 DAY)
     Route: 041
     Dates: start: 20140930, end: 20141006
  7. CANCIDAS [Concomitant]
     Active Substance: CASPOFUNGIN ACETATE
     Dosage: 50 MG, QD
     Dates: start: 20140925, end: 20141002
  8. ACYCLOVIR. [Suspect]
     Active Substance: ACYCLOVIR
     Dosage: 500 MG, ONCE (1 TOTAL, 1 HOUR)
     Route: 041
     Dates: start: 20141014, end: 20141014
  9. LASIX [Suspect]
     Active Substance: FUROSEMIDE
     Dosage: STRENGTH: UNSPECIFIED, VARIABLE DOSAGES
     Route: 041
     Dates: start: 20140927, end: 20141014
  10. RIOPAN [Concomitant]
     Active Substance: MAGALDRATE
     Dosage: 800 MG, TID
     Route: 048
     Dates: start: 20140927
  11. ZOFRAN [Concomitant]
     Active Substance: ONDANSETRON HYDROCHLORIDE
     Dosage: 8 MG, PRN (AS NECESSARY)
     Route: 040

REACTIONS (2)
  - Type I hypersensitivity [Recovered/Resolved]
  - Capillary leak syndrome [Recovered/Resolved]

NARRATIVE: CASE EVENT DATE: 20141007
